FAERS Safety Report 17525470 (Version 1)
Quarter: 2020Q1

REPORT INFORMATION
  Report Type: Spontaneous
  Country: US (occurrence: US)
  Receive Date: 20200310
  Receipt Date: 20200310
  Transmission Date: 20200409
  Serious: No
  Sender: FDA-Public Use
  Company Number: US-LANNETT COMPANY, INC.-US-2019LAN001111

PATIENT
  Sex: Female
  Weight: 49.9 kg

DRUGS (3)
  1. ELETRIPTAN. [Suspect]
     Active Substance: ELETRIPTAN
     Indication: MIGRAINE
     Dosage: 40 MG, 1 INITIALLY AND A 2ND ONE 2 HOURS LATER
     Route: 048
  2. RELPAX [Suspect]
     Active Substance: ELETRIPTAN HYDROBROMIDE
     Indication: MIGRAINE
     Dosage: 40 MG, 1 INITIALLY AND A 2ND ONE 2 HOURS LATER
     Route: 048
     Dates: start: 2003
  3. SUMATRIPTAN. [Suspect]
     Active Substance: SUMATRIPTAN
     Indication: MIGRAINE
     Dosage: 1 SPRAY, SINGLE METERED DOSE, 2 HOURS LATER CAN USE ANOTHER DOSE
     Route: 045

REACTIONS (2)
  - Chest pain [Recovered/Resolved]
  - Therapeutic product ineffective [Unknown]
